FAERS Safety Report 17066846 (Version 2)
Quarter: 2019Q4

REPORT INFORMATION
  Report Type: Report from Study
  Country: JP (occurrence: JP)
  Receive Date: 20191122
  Receipt Date: 20191129
  Transmission Date: 20200122
  Serious: Yes (Hospitalization, Other)
  Sender: FDA-Public Use
  Company Number: JP-BRISTOL-MYERS SQUIBB COMPANY-BMS-2019-104288

PATIENT
  Age: 76 Year
  Sex: Female
  Weight: 46.9 kg

DRUGS (17)
  1. ALENDRONATE SODIUM HYDRATE [Concomitant]
     Active Substance: ALENDRONATE SODIUM
     Indication: OSTEOPOROSIS
     Dosage: 35 MG, QW
     Route: 048
  2. MAGNESIUM OXIDE. [Concomitant]
     Active Substance: MAGNESIUM OXIDE
     Indication: CONSTIPATION
     Dosage: 1000 MG, EVERYDAY
     Route: 048
     Dates: start: 20190408
  3. NIVOLUMAB [Suspect]
     Active Substance: NIVOLUMAB
     Indication: ADULT T-CELL LYMPHOMA/LEUKAEMIA
     Dosage: 3 MILLIGRAM/KILOGRAM, Q2WK
     Route: 041
     Dates: start: 20190408, end: 20191010
  4. ACETAMINOPHEN. [Concomitant]
     Active Substance: ACETAMINOPHEN
     Indication: PROPHYLAXIS
     Dosage: AT THE TIME OF THE STUDY DRUG ADMINISTRATION, 600 MG
     Route: 048
     Dates: start: 20190408
  5. ATORVASTATIN [Concomitant]
     Active Substance: ATORVASTATIN
     Indication: HYPERLIPIDAEMIA
     Dosage: 5 MG, EVERYDAY
     Route: 048
  6. LOXOPROFEN SODIUM [Concomitant]
     Active Substance: LOXOPROFEN SODIUM
     Indication: ARTHRALGIA
     Dosage: 60MG-180MG, WHEN FEEL PAIN (3 TIMES A DAY, 6 HOURS APART)
     Route: 048
     Dates: start: 20191010
  7. IRBESARTAN CHEMIPHA [Concomitant]
     Indication: HYPERTENSION
     Dosage: 100 MG, EVERYDAY
     Route: 048
  8. DAIPHEN [Concomitant]
     Active Substance: SULFAMETHOXAZOLE\TRIMETHOPRIM
     Indication: ANTIFUNGAL PROPHYLAXIS
     Dosage: 0.5 DOSAGE FORM, QD
     Route: 048
  9. AMLODIPINE BESILATE [Concomitant]
     Active Substance: AMLODIPINE BESYLATE
     Indication: HYPERTENSION
     Dosage: 2.5 MG, EVERYDAY
     Route: 048
  10. FLUCONAZOLE. [Concomitant]
     Active Substance: FLUCONAZOLE
     Indication: INFECTION PROPHYLAXIS
     Dosage: 100 MG, EVERYDAY
     Route: 048
  11. DULOXETINE HYDROCHLORIDE. [Concomitant]
     Active Substance: DULOXETINE HYDROCHLORIDE
     Indication: BACK PAIN
     Dosage: 20 MG, EVERYDAY
     Route: 048
  12. PENTAZOCINE [Concomitant]
     Active Substance: PENTAZOCINE
     Indication: ARTHRALGIA
     Dosage: 15 MILLIGRAM, QD
     Route: 041
     Dates: start: 20191016, end: 20191017
  13. RUPATADINE FUMARATE [Concomitant]
     Active Substance: RUPATADINE FUMARATE
     Indication: PRURITUS
     Dosage: 10 MG, EVERYDAY
     Route: 048
     Dates: start: 20190620
  14. LINAGLIPTIN [Concomitant]
     Active Substance: LINAGLIPTIN
     Indication: STEROID DIABETES
     Dosage: 5 MG, EVERYDAY
     Route: 048
     Dates: start: 20190926
  15. LANSOPRAZOLE. [Concomitant]
     Active Substance: LANSOPRAZOLE
     Indication: GASTROOESOPHAGEAL REFLUX DISEASE
     Dosage: 15 MG, EVERYDAY
     Route: 048
  16. PREDNISOLONE. [Concomitant]
     Active Substance: PREDNISOLONE
     Indication: ERYTHEMA MULTIFORME
     Dosage: 7.5 MG, EVERYDAY
     Route: 048
     Dates: start: 20190926, end: 20191009
  17. DIPHENHYDRAMINE HYDROCHLORIDE NISSIN [Concomitant]
     Indication: PROPHYLAXIS
     Dosage: AT THE TIME OF THE STUDY DRUG ADMINISTRATION, 50 MG
     Route: 048
     Dates: start: 20190408

REACTIONS (2)
  - Pneumonia [Recovered/Resolved]
  - Fracture [Recovering/Resolving]

NARRATIVE: CASE EVENT DATE: 20191009
